FAERS Safety Report 19734255 (Version 2)
Quarter: 2021Q4

REPORT INFORMATION
  Report Type: Spontaneous
  Country: US (occurrence: US)
  Receive Date: 20210823
  Receipt Date: 20211008
  Transmission Date: 20220303
  Serious: Yes (Other)
  Sender: FDA-Public Use
  Company Number: US-BAYER-2021-195521

PATIENT
  Age: 26 Year
  Sex: Female
  Weight: 130.61 kg

DRUGS (18)
  1. MIRENA [Suspect]
     Active Substance: LEVONORGESTREL
     Indication: Heavy menstrual bleeding
     Dosage: 20  ?G PER DAY CONTINUOUSLY
     Route: 015
     Dates: start: 20210524, end: 20210809
  2. MIRENA [Suspect]
     Active Substance: LEVONORGESTREL
     Indication: Polymenorrhagia
  3. ALBUTEROL SULFATE [Concomitant]
     Active Substance: ALBUTEROL SULFATE
  4. ALBUTEROL SULFATE [Concomitant]
     Active Substance: ALBUTEROL SULFATE
  5. ASPIRIN [Concomitant]
     Active Substance: ASPIRIN
  6. COLESTIPOL [Concomitant]
     Active Substance: COLESTIPOL
  7. CRANBERRY 400 [Concomitant]
  8. DICLOMINE [OXYPHENCYCLIMINE HYDROCHLORIDE] [Concomitant]
  9. ERGOCALCIFEROL [Concomitant]
     Active Substance: ERGOCALCIFEROL
  10. FLUTICASONE [Concomitant]
     Active Substance: FLUTICASONE
  11. LORATADINE [Concomitant]
     Active Substance: LORATADINE
  12. OLOPATADINE [Concomitant]
     Active Substance: OLOPATADINE
  13. ONDANSETRON [Concomitant]
     Active Substance: ONDANSETRON
  14. OXCARBAZEPINE [Concomitant]
     Active Substance: OXCARBAZEPINE
  15. OXYBUTYNIN. [Concomitant]
     Active Substance: OXYBUTYNIN CHLORIDE
  16. PANTOPRAZOLE [Concomitant]
     Active Substance: PANTOPRAZOLE
  17. PROMETHAZINE [Concomitant]
     Active Substance: PROMETHAZINE HYDROCHLORIDE
  18. SERTRALINE [Concomitant]
     Active Substance: SERTRALINE HYDROCHLORIDE

REACTIONS (3)
  - Device expulsion [Recovered/Resolved]
  - Genital haemorrhage [Recovering/Resolving]
  - Abdominal pain lower [Recovering/Resolving]

NARRATIVE: CASE EVENT DATE: 20210101
